APPROVED DRUG PRODUCT: CONTRAVE
Active Ingredient: BUPROPION HYDROCHLORIDE; NALTREXONE HYDROCHLORIDE
Strength: 90MG;8MG
Dosage Form/Route: TABLET, EXTENDED RELEASE;ORAL
Application: N200063 | Product #001
Applicant: NALPROPION PHARMACEUTICALS LLC
Approved: Sep 10, 2014 | RLD: Yes | RS: Yes | Type: RX

PATENTS:
Patent 8722085 | Expires: Nov 8, 2027
Patent 9107837 | Expires: Jun 4, 2027
Patent 9125868 | Expires: Nov 8, 2027
Patent 10231964 | Expires: Jul 2, 2034
Patent 10307376 | Expires: Nov 8, 2027
Patent 11998542 | Expires: Jul 2, 2034
Patent 11139056 | Expires: Jun 5, 2033
Patent 10403170 | Expires: Jun 5, 2033
Patent 9633575 | Expires: Jun 25, 2033
Patent 12048769 | Expires: Nov 8, 2027
Patent 11324741 | Expires: May 29, 2029
Patent 10835527 | Expires: Jul 2, 2034
Patent 10828294 | Expires: Jul 2, 2034
Patent 11033543 | Expires: Jan 10, 2031
Patent 8318788 | Expires: Nov 8, 2027
Patent 8916195 | Expires: Feb 2, 2030
Patent 9248123 | Expires: Jan 13, 2032
Patent 8088786 | Expires: Feb 3, 2029